FAERS Safety Report 17781758 (Version 1)
Quarter: 2020Q2

REPORT INFORMATION
  Report Type: Spontaneous
  Country: US (occurrence: US)
  Receive Date: 20200513
  Receipt Date: 20200513
  Transmission Date: 20200714
  Serious: Yes (Other)
  Sender: FDA-Public Use
  Company Number: None

PATIENT
  Age: 48 Year
  Sex: Female
  Weight: 49.5 kg

DRUGS (4)
  1. TOPAMAX [Concomitant]
     Active Substance: TOPIRAMATE
  2. PLAVIX [Concomitant]
     Active Substance: CLOPIDOGREL BISULFATE
  3. ASPIRIN. [Concomitant]
     Active Substance: ASPIRIN
  4. TRAMADOL. [Suspect]
     Active Substance: TRAMADOL
     Indication: HEADACHE
     Dosage: ?          QUANTITY:12 TABLET(S);?
     Route: 048
     Dates: start: 20200508, end: 20200512

REACTIONS (6)
  - Headache [None]
  - Product substitution issue [None]
  - Peripheral swelling [None]
  - Incorrect dose administered [None]
  - Swelling face [None]
  - Seizure [None]

NARRATIVE: CASE EVENT DATE: 20200509
